FAERS Safety Report 11857786 (Version 1)
Quarter: 2015Q4

REPORT INFORMATION
  Report Type: Spontaneous
  Country: US (occurrence: None)
  Receive Date: 20151221
  Receipt Date: 20151221
  Transmission Date: 20160305
  Serious: Yes (Disabling)
  Sender: FDA-Public Use
  Company Number: None

PATIENT
  Age: 48 Year
  Sex: Female
  Weight: 41.73 kg

DRUGS (7)
  1. OXYMORPHINE [Concomitant]
     Active Substance: OXYMORPHONE
  2. GABAPENTIN. [Concomitant]
     Active Substance: GABAPENTIN
  3. SENSIPAR [Concomitant]
     Active Substance: CINACALCET HYDROCHLORIDE
  4. BINDERS FOR KIDNEY [Concomitant]
  5. OXYCONTIN [Suspect]
     Active Substance: OXYCODONE HYDROCHLORIDE
     Indication: PAIN
     Route: 048
  6. RAPAMUNE [Concomitant]
     Active Substance: SIROLIMUS
  7. CELLCEPT [Concomitant]
     Active Substance: MYCOPHENOLATE MOFETIL\MYCOPHENOLATE MOFETIL HYDROCHLORIDE

REACTIONS (4)
  - Gastric disorder [None]
  - Product substitution issue [None]
  - Quality of life decreased [None]
  - Drug ineffective [None]
